FAERS Safety Report 19466358 (Version 1)
Quarter: 2021Q2

REPORT INFORMATION
  Report Type: Spontaneous
  Country: US (occurrence: US)
  Receive Date: 20210627
  Receipt Date: 20210627
  Transmission Date: 20210717
  Serious: Yes (Hospitalization)
  Sender: FDA-Public Use
  Company Number: US-CELLTRION INC.-2021US006762

PATIENT

DRUGS (21)
  1. ONGLYZA [SAXAGLIPTIN] [Concomitant]
     Dosage: TAKE 2.5 MG BY MOUTH EVERY MORNING
     Route: 048
  2. VITAMIN D3 [Concomitant]
     Active Substance: CHOLECALCIFEROL
     Dosage: TAKE 1000 UNITS BY MOUTH EVERY 1 (ONE) DAY
     Route: 048
  3. ZOFRAN [Concomitant]
     Active Substance: ONDANSETRON HYDROCHLORIDE
     Indication: NAUSEA
     Dosage: TAKE 1 TABLET (4 MG TOTAL) BY MOUTH EVERY 6 HOURS AS NEEDED FOR NAUSEA
     Route: 048
  4. TRUXIMA [Suspect]
     Active Substance: RITUXIMAB-ABBS
     Indication: ARTERITIS
     Dosage: 1000 MG/IV, DAY 0 DAY 14, EVERY 6 MONTHS
     Route: 042
     Dates: start: 20210518
  5. VENTOLIN [Concomitant]
     Active Substance: ALBUTEROL SULFATE
     Indication: DYSPNOEA
     Dosage: 108 (90 BASE) MCG/ACT INHALER, INHALE 2 PUFFS 4 (FOUR) HOURS AS NEEDED
  6. FOLVITE [FOLIC ACID] [Concomitant]
     Dosage: TAKE 1 TABLET (1 MG TOTAL) BY MOUTH EVERY 1 (ONE) DAY FOR 30 DAYS
     Route: 048
  7. PROVENTIL HFA [Concomitant]
     Active Substance: ALBUTEROL SULFATE
     Indication: DYSPNOEA
     Dosage: 108 (90 BASE) MCG/ACT INHALER, INHALE 2 PUFFS 4 (FOUR) HOURS AS NEEDED
  8. ELIQUIS [Concomitant]
     Active Substance: APIXABAN
     Dosage: TAKE 5 MG BY MOUTH 2 (TWO) TIMES A DAY
     Route: 048
  9. COMBIVENT RESPIMAT [Concomitant]
     Active Substance: ALBUTEROL SULFATE\IPRATROPIUM BROMIDE
     Dosage: 20?100 MCG/ACT AERO SOLN INHALER, INHALE 1 PUFF 4 (FOUR) TIMES A DAY
  10. PLENVU [Concomitant]
     Active Substance: ASCORBIC ACID\POLYETHYLENE GLYCOL 3350\POTASSIUM CHLORIDE\SODIUM ASCORBATE\SODIUM CHLORIDE\SODIUM SULFATE
     Dosage: TAKE AS DIRECTED FROM INSTRUCTIONAL SHEET TAHAT WAS PROVIDED
     Route: 065
  11. HYDROCODONE/ACETAMINOPHEN [Concomitant]
     Active Substance: ACETAMINOPHEN\HYDROCODONE
     Dosage: 10?325 MG/15 ML SOLUTION, 1?2 TABLET AS NEEDED FOR ACUTE PAIN
  12. PANTOPRAZOLE [Concomitant]
     Active Substance: PANTOPRAZOLE
     Dosage: TAKE 1 TABLET BY MOUTH TWICE DAILY
     Route: 048
  13. ELIQUIS [Concomitant]
     Active Substance: APIXABAN
     Dosage: TAKE 2 TABLETS (10 MG TOTAL) BY MOUTH 2 (TWO) TIMES A DAY
     Route: 048
  14. SYMBICORT [Concomitant]
     Active Substance: BUDESONIDE\FORMOTEROL FUMARATE DIHYDRATE
     Dosage: 160?4.5 MCG/ACT INHALER, INHALE 2 PUFFS 2 (TWO) TIMES A DAY
  15. ULTRAM [Concomitant]
     Active Substance: TRAMADOL HYDROCHLORIDE
     Dosage: TAKE 1 TABLET (50 MG TOTAL) BY MOUTH EVERY 4 (FOUR) HOURS AS NEEDED
     Route: 048
  16. METHOTREXATE. [Concomitant]
     Active Substance: METHOTREXATE
     Dosage: 15 MG Q WEEK
     Route: 058
  17. PROAIR HFA [Concomitant]
     Active Substance: ALBUTEROL SULFATE
     Indication: DYSPNOEA
     Dosage: 108 (90 BASE) MCG/ACT INHALER, INHALE 2 PUFFS 4 (FOUR) HOURS AS NEEDED
  18. KENALOG [Concomitant]
     Active Substance: TRIAMCINOLONE ACETONIDE
     Dosage: 0.1 PERCENT, 2 TIMES DAILY FOR 2 WEEKS THEN DISCONTINUED, REPEAT CYCLE AS NEEDED
     Route: 061
  19. TRUXIMA [Suspect]
     Active Substance: RITUXIMAB-ABBS
     Indication: VASCULITIS
     Dosage: 1000 MG/IV, DAY 0 DAY 14, EVERY 6 MONTHS
     Route: 042
     Dates: start: 20210504
  20. HYDROCODONE/ACETAMINOPHEN [Concomitant]
     Active Substance: ACETAMINOPHEN\HYDROCODONE
     Indication: PAIN
     Dosage: 10?325 MG/15 ML SOLUTION, 1?2 TABLET AS NEEDED FOR ACUTE PAIN
  21. CARAFATE [Concomitant]
     Active Substance: SUCRALFATE
     Dosage: GM/10ML, TAKE BY MOUTH AS NEEDED
     Route: 048

REACTIONS (2)
  - Off label use [Unknown]
  - COVID-19 pneumonia [Unknown]

NARRATIVE: CASE EVENT DATE: 20210504
